FAERS Safety Report 8784371 (Version 1)
Quarter: 2012Q4

REPORT INFORMATION
  Report Type: 
  Country: US (occurrence: US)
  Receive Date: 20120913
  Receipt Date: 20120913
  Transmission Date: 20130627
  Serious: No
  Sender: FDA-Public Use
  Company Number: US-ASTRAZENECA-2012SE58102

PATIENT
  Age: 36 Year
  Sex: Male
  Weight: 72.6 kg

DRUGS (2)
  1. OMEPRAZOLE [Suspect]
     Indication: GASTROOESOPHAGEAL REFLUX DISEASE
     Route: 048
  2. SEROQUEL [Suspect]
     Indication: BIPOLAR DISORDER
     Route: 048
     Dates: start: 2000

REACTIONS (6)
  - Mood swings [Unknown]
  - Nausea [Unknown]
  - Insomnia [Unknown]
  - Impulsive behaviour [Unknown]
  - Vomiting [Unknown]
  - Drug dose omission [Unknown]
